FAERS Safety Report 8761036 (Version 1)
Quarter: 2012Q4

REPORT INFORMATION
  Report Type: 
  Country: GB (occurrence: GB)
  Receive Date: 20120830
  Receipt Date: 20120830
  Transmission Date: 20130627
  Serious: Yes (Other)
  Sender: FDA-Public Use
  Company Number: GB-TEVA-348251ISR

PATIENT
  Age: 31 Year
  Sex: Male
  Weight: 118 kg

DRUGS (2)
  1. HALOPERIDOL [Suspect]
     Indication: DELUSION
     Dosage: 10 Milligram Daily; Dosage Form: Unspecified
     Route: 065
     Dates: start: 2005, end: 2005
  2. HALOPERIDOL [Suspect]
     Route: 065
     Dates: start: 2006

REACTIONS (2)
  - Drug hypersensitivity [Unknown]
  - Jaw disorder [Recovered/Resolved]
